FAERS Safety Report 17945364 (Version 2)
Quarter: 2020Q3

REPORT INFORMATION
  Report Type: Spontaneous
  Country: GT (occurrence: GT)
  Receive Date: 20200625
  Receipt Date: 20200707
  Transmission Date: 20201103
  Serious: Yes (Death, Other)
  Sender: FDA-Public Use
  Company Number: GT-ELI_LILLY_AND_COMPANY-GT202006009543

PATIENT
  Age: 56 Year
  Sex: Male

DRUGS (1)
  1. TRULICITY [Suspect]
     Active Substance: DULAGLUTIDE
     Indication: TYPE 2 DIABETES MELLITUS
     Dosage: 1.5 MG, WEEKLY (1/W)
     Route: 065
     Dates: start: 202001, end: 202005

REACTIONS (2)
  - Neoplasm [Unknown]
  - Post procedural complication [Fatal]
